FAERS Safety Report 20445977 (Version 1)
Quarter: 2022Q1

REPORT INFORMATION
  Report Type: Spontaneous
  Country: DE (occurrence: DE)
  Receive Date: 20220208
  Receipt Date: 20220208
  Transmission Date: 20220424
  Serious: Yes (Other)
  Sender: FDA-Public Use
  Company Number: None

PATIENT

DRUGS (1)
  1. CYTOTEC [Suspect]
     Active Substance: MISOPROSTOL
     Dosage: STARTING AT 50, THEN AT 100 MICROGRAMS, SEVERAL TIMES A DAY
     Route: 064
     Dates: start: 20210118, end: 20210121

REACTIONS (2)
  - Foetal exposure during pregnancy [Recovered/Resolved]
  - Foetal heart rate disorder [Recovered/Resolved]

NARRATIVE: CASE EVENT DATE: 20210118
